FAERS Safety Report 11913258 (Version 1)
Quarter: 2016Q1

REPORT INFORMATION
  Report Type: Spontaneous
  Country: FR (occurrence: FR)
  Receive Date: 20160113
  Receipt Date: 20160113
  Transmission Date: 20160526
  Serious: Yes (Life-Threatening, Other)
  Sender: FDA-Public Use
  Company Number: FR-PFIZER INC-2016006383

PATIENT
  Age: 61 Year
  Sex: Male

DRUGS (7)
  1. AMOXICILLINE PANPHARMA [Interacting]
     Active Substance: AMOXICILLIN
     Dosage: 4 G, 3X/DAY
     Route: 042
     Dates: start: 20150925, end: 20151001
  2. ADRIBLASTINE [Concomitant]
     Active Substance: DOXORUBICIN
     Dosage: UNK
     Dates: start: 20150922
  3. VELBE [Concomitant]
     Active Substance: VINBLASTINE SULFATE
     Dosage: UNK
     Dates: start: 20150922
  4. GEMZAR [Concomitant]
     Active Substance: GEMCITABINE HYDROCHLORIDE
     Dosage: UNK
     Dates: start: 20150922
  5. EUPANTOL [Suspect]
     Active Substance: PANTOPRAZOLE SODIUM
     Dosage: 1 DF, DAILY
     Route: 042
     Dates: start: 20150923, end: 20151005
  6. BLEOMYCIN [Concomitant]
     Active Substance: BLEOMYCIN SULFATE
     Dosage: UNK
     Dates: start: 20150922
  7. METHOTREXATE (METHOTREXATE SODIUM) [Interacting]
     Active Substance: METHOTREXATE SODIUM
     Dosage: 5250 MG, SINGLE ( IN ONE UNIQUE DOSE)
     Route: 042
     Dates: start: 20151001, end: 20151001

REACTIONS (3)
  - Acute kidney injury [Not Recovered/Not Resolved]
  - Chemotherapeutic drug level above therapeutic [Recovering/Resolving]
  - Drug interaction [Not Recovered/Not Resolved]

NARRATIVE: CASE EVENT DATE: 20150923
